FAERS Safety Report 9481919 (Version 1)
Quarter: 2013Q3

REPORT INFORMATION
  Report Type: Spontaneous
  Country: US (occurrence: None)
  Receive Date: 20130823
  Receipt Date: 20130823
  Transmission Date: 20140515
  Serious: Yes (Other)
  Sender: FDA-Public Use
  Company Number: AUR-APL-2013-06891

PATIENT
  Sex: Female
  Weight: 72.56 kg

DRUGS (4)
  1. LISINOPRIL [Suspect]
     Indication: BLOOD CHOLESTEROL ABNORMAL
     Dosage: 20/12.5MG, 1X/DAY
  2. CELEBREX [Suspect]
     Indication: ARTHRALGIA
  3. ASPIRIN [Suspect]
     Indication: ANTICOAGULANT THERAPY
  4. ATACAND HCT [Suspect]
     Indication: HYPERTENSION
     Dosage: UNKNOWN DOSE (AFTER SPLITTING 32/12.5 MG TABLET INTO HALF), 1X/DAY, ORAL
     Dates: start: 2013

REACTIONS (4)
  - Constipation [None]
  - Wrong technique in drug usage process [None]
  - Blood cholesterol increased [None]
  - Drug ineffective [None]
